FAERS Safety Report 22027456 (Version 1)
Quarter: 2023Q1

REPORT INFORMATION
  Report Type: Spontaneous
  Country: PL (occurrence: PL)
  Receive Date: 20230223
  Receipt Date: 20230223
  Transmission Date: 20230418
  Serious: Yes (Other)
  Sender: FDA-Public Use
  Company Number: PL-SUN PHARMACEUTICAL INDUSTRIES LTD-2023R1-379996

PATIENT
  Age: 20 Year
  Sex: Male
  Weight: 62 kg

DRUGS (2)
  1. DOXORUBICIN [Suspect]
     Active Substance: DOXORUBICIN
     Indication: Chemotherapy
     Dosage: 130 MILLIGRAM/6 CYCLES
     Route: 065
  2. DACARBAZINE [Suspect]
     Active Substance: DACARBAZINE
     Indication: Chemotherapy
     Dosage: 1305 MILLIGRAM/6 CYCLES
     Route: 065

REACTIONS (8)
  - Condition aggravated [Unknown]
  - Hyperkalaemia [Unknown]
  - Hyperuricaemia [Unknown]
  - Acute kidney injury [Unknown]
  - Tumour lysis syndrome [Unknown]
  - Diarrhoea [Unknown]
  - Rectal tenesmus [Unknown]
  - Constipation [Unknown]
